FAERS Safety Report 12658804 (Version 1)
Quarter: 2016Q3

REPORT INFORMATION
  Report Type: Spontaneous
  Country: US (occurrence: None)
  Receive Date: 20160816
  Receipt Date: 20160816
  Transmission Date: 20161109
  Serious: Yes (Life-Threatening, Hospitalization, Disabling, Other)
  Sender: FDA-Public Use
  Company Number: None

PATIENT
  Age: 73 Year
  Sex: Male
  Weight: 79.38 kg

DRUGS (21)
  1. FUROSEMIDE. [Concomitant]
     Active Substance: FUROSEMIDE
  2. ENTYVIO [Suspect]
     Active Substance: VEDOLIZUMAB
     Indication: COLITIS ULCERATIVE
     Route: 042
  3. TAZTIA XT [Concomitant]
     Active Substance: DILTIAZEM HYDROCHLORIDE
  4. PRADAXA [Concomitant]
     Active Substance: DABIGATRAN ETEXILATE MESYLATE
  5. SPIRIVA INHALER [Concomitant]
  6. ALPRAZOLAM. [Concomitant]
     Active Substance: ALPRAZOLAM
  7. METOLAZONE. [Concomitant]
     Active Substance: METOLAZONE
  8. AMBIEN [Concomitant]
     Active Substance: ZOLPIDEM TARTRATE
  9. FOLIC ACID. [Concomitant]
     Active Substance: FOLIC ACID
  10. MESALAMINE. [Concomitant]
     Active Substance: MESALAMINE
  11. TAMULOSIN [Concomitant]
     Active Substance: TAMSULOSIN
  12. FERROUS SULFATE. [Concomitant]
     Active Substance: FERROUS SULFATE
  13. NOVOLOC [Concomitant]
  14. NITROSTAT [Concomitant]
     Active Substance: NITROGLYCERIN
  15. PREDNISONE. [Concomitant]
     Active Substance: PREDNISONE
  16. AZATHOPRINE [Concomitant]
     Active Substance: AZATHIOPRINE
  17. SIMVASTATIN. [Concomitant]
     Active Substance: SIMVASTATIN
  18. PANTOPRAZOLE [Concomitant]
     Active Substance: PANTOPRAZOLE SODIUM
  19. PROAIR HFA [Concomitant]
     Active Substance: ALBUTEROL SULFATE
  20. POTASSIUM [Concomitant]
     Active Substance: POTASSIUM
  21. SIMBICORT [Concomitant]
     Active Substance: BUDESONIDE\FORMOTEROL FUMARATE

REACTIONS (7)
  - Hemiparesis [None]
  - Confusional state [None]
  - Balance disorder [None]
  - Pneumothorax [None]
  - Gait disturbance [None]
  - Hypophagia [None]
  - Asthenia [None]

NARRATIVE: CASE EVENT DATE: 20160601
